FAERS Safety Report 10182815 (Version 1)
Quarter: 2014Q2

REPORT INFORMATION
  Report Type: Spontaneous
  Country: US (occurrence: US)
  Receive Date: 20140520
  Receipt Date: 20140520
  Transmission Date: 20141212
  Serious: Yes (Other)
  Sender: FDA-Public Use
  Company Number: US-SA-2014SA063654

PATIENT
  Sex: Female

DRUGS (1)
  1. TUBERCULIN PPD(M) 5 TU [Suspect]
     Indication: TUBERCULIN TEST
     Route: 023
     Dates: start: 201405, end: 201405

REACTIONS (3)
  - Throat tightness [Recovered/Resolved]
  - Dizziness [Recovered/Resolved]
  - Heart rate increased [Recovered/Resolved]
